FAERS Safety Report 5604116-3 (Version None)
Quarter: 2008Q1

REPORT INFORMATION
  Report Type: 
  Country: None (occurrence: None)
  Receive Date: 20080123
  Receipt Date: 20071211
  Transmission Date: 20080703
  Serious: Yes (Hospitalization)
  Sender: FDA-Public Use
  Company Number: ABX06-05-0223

PATIENT
  Age: 66 Year
  Sex: Female
  Weight: 83.0083 kg

DRUGS (10)
  1. ABRAXANE [Suspect]
     Indication: BREAST CANCER METASTATIC
     Dosage: CYCLE 9, 4 WEEKS (240 MG,EVERY 3 WEEKS/ CYCLE 9 EVERY 4 WEEKS), INTRAVENOUS DRIP
     Route: 041
     Dates: start: 20050324, end: 20050331
  2. HERCEPTIN [Suspect]
     Dosage: (325 MG,EVERY WEEK), INTRAVENOUS ; (160 MG,WEEKLY), INTRAVENOUS
     Route: 042
     Dates: start: 20050324, end: 20050324
  3. HERCEPTIN [Suspect]
     Dosage: (325 MG,EVERY WEEK), INTRAVENOUS ; (160 MG,WEEKLY), INTRAVENOUS
     Route: 042
     Dates: start: 20050331
  4. PRAVACHOL [Concomitant]
  5. AMBIEN [Concomitant]
  6. PERCOCET [Concomitant]
  7. PROMETHAZINE [Concomitant]
  8. CITALOPRAM HYDROBROMIDE [Concomitant]
  9. LOPRESSOR [Concomitant]
  10. NIFEREX (POLYSACCHARIDE-IRON COMPLEX) [Concomitant]

REACTIONS (8)
  - ARTHRITIS BACTERIAL [None]
  - ATELECTASIS [None]
  - CONFUSIONAL STATE [None]
  - HEART RATE INCREASED [None]
  - JOINT EFFUSION [None]
  - PNEUMONIA [None]
  - SEPSIS [None]
  - VOMITING [None]
